FAERS Safety Report 13276169 (Version 1)
Quarter: 2017Q1

REPORT INFORMATION
  Report Type: Spontaneous
  Country: US (occurrence: US)
  Receive Date: 20170227
  Receipt Date: 20170227
  Transmission Date: 20170428
  Serious: Yes (Other)
  Sender: FDA-Public Use
  Company Number: None

PATIENT
  Age: 29 Year
  Sex: Female
  Weight: 81.45 kg

DRUGS (6)
  1. METRONIDAZOLE. [Suspect]
     Active Substance: METRONIDAZOLE
     Indication: BACTERIAL VAGINOSIS
     Dosage: ?          QUANTITY:14 TABLET(S);?
     Route: 048
     Dates: start: 20170216, end: 20170221
  2. VENTOLIN [Concomitant]
     Active Substance: ALBUTEROL SULFATE
  3. ATARAX [Concomitant]
     Active Substance: HYDROXYZINE HYDROCHLORIDE
  4. ZANTAC [Concomitant]
     Active Substance: RANITIDINE HYDROCHLORIDE
  5. BENADRYL [Concomitant]
     Active Substance: DIPHENHYDRAMINE HYDROCHLORIDE
  6. SPRINTEC [Concomitant]
     Active Substance: ETHINYL ESTRADIOL\NORGESTIMATE

REACTIONS (11)
  - Hot flush [None]
  - Muscular weakness [None]
  - Neck pain [None]
  - Pyrexia [None]
  - Musculoskeletal stiffness [None]
  - Musculoskeletal pain [None]
  - Hypoaesthesia [None]
  - Balance disorder [None]
  - Anxiety [None]
  - Vertigo [None]
  - Neurological symptom [None]

NARRATIVE: CASE EVENT DATE: 20170218
